FAERS Safety Report 6174335-9 (Version None)
Quarter: 2009Q2

REPORT INFORMATION
  Report Type: 
  Country: None (occurrence: None)
  Receive Date: 20090430
  Receipt Date: 20080516
  Transmission Date: 20091009
  Serious: No
  Sender: FDA-Public Use
  Company Number: US-ASTRAZENECA-2008UW10195

PATIENT
  Age: 60 Year
  Sex: Male
  Weight: 83.9 kg

DRUGS (9)
  1. NEXIUM [Suspect]
     Indication: GASTROOESOPHAGEAL REFLUX DISEASE
     Dosage: 40 MG
     Route: 048
     Dates: start: 20080512
  2. NEXIUM [Suspect]
     Indication: THROAT IRRITATION
     Dosage: 40 MG
     Route: 048
     Dates: start: 20080512
  3. NEXIUM [Suspect]
     Dosage: INCREASED DOSE TO 2 CAPSULES PER DAY
     Route: 048
     Dates: start: 20080514
  4. NEXIUM [Suspect]
     Dosage: INCREASED DOSE TO 2 CAPSULES PER DAY
     Route: 048
     Dates: start: 20080514
  5. GLUCOTROL [Concomitant]
  6. ASPIRIN [Concomitant]
  7. LIPITOR [Concomitant]
  8. HYDROCHLOROTHIAZIDE [Concomitant]
  9. DIOVAN [Concomitant]

REACTIONS (2)
  - DRUG INEFFECTIVE [None]
  - THROAT IRRITATION [None]
